FAERS Safety Report 9893448 (Version 1)
Quarter: 2014Q1

REPORT INFORMATION
  Report Type: Spontaneous
  Country: AU (occurrence: AU)
  Receive Date: 20140213
  Receipt Date: 20140213
  Transmission Date: 20141002
  Serious: Yes (Hospitalization)
  Sender: FDA-Public Use
  Company Number: AU-DRREDDYS-AUS/AUS/14/0037944

PATIENT
  Age: 13 Year
  Sex: Male

DRUGS (1)
  1. FEXOFENADINE 180MG TABLETS [Suspect]
     Indication: RASH
     Route: 048
     Dates: start: 20140130

REACTIONS (1)
  - Foreign body [Recovered/Resolved]
